FAERS Safety Report 7648759-4 (Version None)
Quarter: 2011Q3

REPORT INFORMATION
  Report Type: 
  Country: None (occurrence: None)
  Receive Date: 20110801
  Receipt Date: 20110726
  Transmission Date: 20111222
  Serious: Yes (Death, Other)
  Sender: FDA-Public Use
  Company Number: PHHY2011FR67573

PATIENT
  Sex: Female
  Weight: 6.2 kg

DRUGS (11)
  1. SUFENTANIL CITRATE [Suspect]
     Dosage: 1 UG, UNK
     Route: 042
     Dates: start: 20110622
  2. SANDOSTATIN [Suspect]
     Dosage: 2 UG/HR, UNK
     Route: 042
     Dates: start: 20110622
  3. PROPRANOLOL [Suspect]
     Dosage: 3 MG, BID
     Dates: start: 20110609, end: 20110615
  4. PROPRANOLOL [Suspect]
     Dosage: 6 MG, BID
     Dates: start: 20110616
  5. PROPRANOLOL [Suspect]
     Dates: start: 20110622
  6. SEVOFLURANE [Suspect]
     Dates: start: 20110622
  7. ALDACTONE [Concomitant]
     Dates: start: 20110531
  8. AETOXISCLEROL [Suspect]
     Dates: start: 20110622
  9. SUCCINYLCHOLINE CHLORIDE [Suspect]
     Dosage: 30 MG, UNK
     Dates: start: 20110622
  10. DIPRIVAN [Suspect]
     Dates: start: 20110622
  11. ALBUMIN (HUMAN) [Concomitant]
     Dates: start: 20110531

REACTIONS (25)
  - CARDIAC ARREST [None]
  - ASPARTATE AMINOTRANSFERASE INCREASED [None]
  - ALANINE AMINOTRANSFERASE INCREASED [None]
  - BLOOD ALKALINE PHOSPHATASE INCREASED [None]
  - BILIRUBIN CONJUGATED INCREASED [None]
  - ATRIOVENTRICULAR BLOCK [None]
  - CYANOSIS [None]
  - AREFLEXIA [None]
  - PULMONARY ARTERIAL HYPERTENSION [None]
  - RHYTHM IDIOVENTRICULAR [None]
  - VENTRICULAR DYSFUNCTION [None]
  - CARDIOVASCULAR INSUFFICIENCY [None]
  - END-TIDAL CO2 DECREASED [None]
  - PORTAL HYPERTENSION [None]
  - VARICES OESOPHAGEAL [None]
  - GAMMA-GLUTAMYLTRANSFERASE INCREASED [None]
  - BLOOD BILIRUBIN INCREASED [None]
  - VENTRICULAR HYPOKINESIA [None]
  - JAUNDICE [None]
  - BRADYCARDIA [None]
  - EJECTION FRACTION DECREASED [None]
  - BLOOD PRESSURE DECREASED [None]
  - GASTRITIS [None]
  - TREATMENT FAILURE [None]
  - ABDOMINAL DISTENSION [None]
